FAERS Safety Report 10057990 (Version 1)
Quarter: 2014Q2

REPORT INFORMATION
  Report Type: Spontaneous
  Country: US (occurrence: US)
  Receive Date: 20140404
  Receipt Date: 20140404
  Transmission Date: 20141212
  Serious: Yes (Other)
  Sender: FDA-Public Use
  Company Number: US-ASTRAZENECA-2014SE22521

PATIENT
  Age: 417 Month
  Sex: Male
  Weight: 64 kg

DRUGS (6)
  1. NEXIUM [Suspect]
     Indication: PHARYNGEAL EROSION
     Route: 048
     Dates: start: 201308, end: 20140321
  2. NUVIGIL [Concomitant]
     Indication: NARCOLEPSY
     Route: 048
  3. RANITIDINE [Concomitant]
     Indication: GASTROOESOPHAGEAL REFLUX DISEASE
     Route: 048
  4. BABY ASPIRIN [Concomitant]
     Indication: PROPHYLAXIS
     Route: 048
  5. RESCUE INHALER [Concomitant]
  6. MENS MULTIVITAMIN [Concomitant]
     Route: 048

REACTIONS (14)
  - Basal cell carcinoma [Unknown]
  - Bone cyst [Unknown]
  - Memory impairment [Unknown]
  - Fatigue [Unknown]
  - Tremor [Unknown]
  - Ligament rupture [Unknown]
  - Pyrexia [Unknown]
  - Pain in extremity [Unknown]
  - Headache [Unknown]
  - Nausea [Unknown]
  - Diarrhoea [Unknown]
  - Constipation [Unknown]
  - Muscular weakness [Unknown]
  - Agitation [Unknown]
